FAERS Safety Report 24766052 (Version 2)
Quarter: 2025Q3

REPORT INFORMATION
  Report Type: Spontaneous
  Country: CN (occurrence: CN)
  Receive Date: 20241223
  Receipt Date: 20250809
  Transmission Date: 20251020
  Serious: Yes (Hospitalization, Other)
  Sender: ALEXION PHARMACEUTICALS
  Company Number: CN-ASTRAZENECA-202412CHN018183CN

PATIENT
  Age: 66 Year
  Sex: Female
  Weight: 62 kg

DRUGS (2)
  1. TAGRISSO [Suspect]
     Active Substance: OSIMERTINIB
     Indication: Prophylaxis
     Dosage: 80 MILLIGRAM, QD
     Dates: start: 20241215, end: 20241219
  2. SINTILIMAB [Suspect]
     Active Substance: SINTILIMAB
     Indication: Prophylaxis
     Dosage: 200 MILLIGRAM, QMONTH
     Dates: start: 20241216, end: 20241216

REACTIONS (1)
  - Myelosuppression [Recovering/Resolving]

NARRATIVE: CASE EVENT DATE: 20241219
